FAERS Safety Report 16157070 (Version 3)
Quarter: 2019Q2

REPORT INFORMATION
  Report Type: Report from Study
  Country: US (occurrence: US)
  Receive Date: 20190404
  Receipt Date: 20190614
  Transmission Date: 20190711
  Serious: Yes (Other)
  Sender: FDA-Public Use
  Company Number: US-GILEAD-2019-0399698

PATIENT
  Age: 70 Year
  Sex: Female

DRUGS (1)
  1. AMBRISENTAN [Suspect]
     Active Substance: AMBRISENTAN
     Indication: PULMONARY ARTERIAL HYPERTENSION
     Dosage: 10 MG, QD
     Route: 065
     Dates: start: 20181224

REACTIONS (6)
  - Ill-defined disorder [Unknown]
  - Weight increased [Unknown]
  - Arteriovenous fistula occlusion [Not Recovered/Not Resolved]
  - Dialysis [Unknown]
  - Oedema [Not Recovered/Not Resolved]
  - Treatment noncompliance [Unknown]
